FAERS Safety Report 19476486 (Version 1)
Quarter: 2021Q2

REPORT INFORMATION
  Report Type: Report from Study
  Country: US (occurrence: US)
  Receive Date: 20210630
  Receipt Date: 20210630
  Transmission Date: 20210717
  Serious: Yes (Other)
  Sender: FDA-Public Use
  Company Number: US-BRISTOL-MYERS SQUIBB COMPANY-BMS-2021-061869

PATIENT
  Age: 64 Year
  Sex: Male
  Weight: 55.7 kg

DRUGS (12)
  1. NIVOLUMAB [Suspect]
     Active Substance: NIVOLUMAB
     Indication: BLADDER CANCER
     Dosage: TOTAL DOSE ADMINISTERED THIS COURSE WAS 760 MG
     Route: 042
     Dates: start: 20210429, end: 20210521
  2. IPILIMUMAB [Suspect]
     Active Substance: IPILIMUMAB
     Indication: BLADDER CANCER
     Dosage: TOTAL DOSE ADMINISTERED THIS COURSE WAS 66 MG
     Route: 042
     Dates: start: 20210429, end: 20210520
  3. GLYCOLAX [Concomitant]
     Active Substance: POLYETHYLENE GLYCOL 3350
     Indication: PRODUCT USED FOR UNKNOWN INDICATION
     Dosage: UNK
     Route: 065
  4. POTASSIUM PHOSPHATES [Concomitant]
     Active Substance: POTASSIUM PHOSPHATE, DIBASIC\POTASSIUM PHOSPHATE, MONOBASIC
     Indication: PRODUCT USED FOR UNKNOWN INDICATION
     Dosage: UNK
     Route: 065
  5. ZOFRAN [Concomitant]
     Active Substance: ONDANSETRON HYDROCHLORIDE
     Indication: PRODUCT USED FOR UNKNOWN INDICATION
     Dosage: UNK
     Route: 065
  6. MORPHINE SULFATE. [Concomitant]
     Active Substance: MORPHINE SULFATE
     Indication: PRODUCT USED FOR UNKNOWN INDICATION
     Dosage: UNK
     Route: 065
  7. SENNA [Concomitant]
     Active Substance: SENNA LEAF\SENNOSIDES\SENNOSIDES A AND B
     Indication: PRODUCT USED FOR UNKNOWN INDICATION
     Dosage: UNK
     Route: 065
  8. PROTONIX [OMEPRAZOLE] [Concomitant]
     Active Substance: OMEPRAZOLE
     Indication: PRODUCT USED FOR UNKNOWN INDICATION
     Dosage: UNK
     Route: 065
  9. XARELTO [Concomitant]
     Active Substance: RIVAROXABAN
     Indication: PRODUCT USED FOR UNKNOWN INDICATION
     Dosage: UNK
     Route: 065
  10. CABOZANTINIB [Suspect]
     Active Substance: CABOZANTINIB
     Indication: BLADDER CANCER
     Dosage: TOTAL DOSE ADMINISTERED THIS COURSE WAS 40 MG
     Route: 048
     Dates: start: 20210429, end: 20210520
  11. NITROGLYCERIN. [Concomitant]
     Active Substance: NITROGLYCERIN
     Indication: PRODUCT USED FOR UNKNOWN INDICATION
     Dosage: UNK
     Route: 065
  12. PRAVACHOL [Concomitant]
     Active Substance: PRAVASTATIN SODIUM
     Indication: PRODUCT USED FOR UNKNOWN INDICATION
     Dosage: UNK
     Route: 065

REACTIONS (1)
  - Hypokalaemia [Recovered/Resolved with Sequelae]

NARRATIVE: CASE EVENT DATE: 20210513
